FAERS Safety Report 6298431-0 (Version None)
Quarter: 2009Q3

REPORT INFORMATION
  Report Type: 
  Country: None (occurrence: None)
  Receive Date: 20090805
  Receipt Date: 20090727
  Transmission Date: 20100115
  Serious: Yes (Hospitalization)
  Sender: FDA-Public Use
  Company Number: FR-ELI_LILLY_AND_COMPANY-FR200907005750

PATIENT
  Sex: Female

DRUGS (6)
  1. ZYPREXA [Suspect]
     Route: 048
     Dates: end: 20090619
  2. DETENSIEL [Concomitant]
     Dosage: 10 MG, DAILY (1/D)
     Route: 048
  3. SERESTA [Concomitant]
     Dosage: 10 MG, DAILY (1/D)
     Route: 048
  4. PARKINANE [Concomitant]
     Indication: PARKINSONISM
  5. PREVISCAN [Concomitant]
  6. DEPAKOTE [Concomitant]

REACTIONS (1)
  - FALL [None]
